FAERS Safety Report 24569258 (Version 3)
Quarter: 2025Q3

REPORT INFORMATION
  Report Type: Spontaneous
  Country: EU (occurrence: EU)
  Receive Date: 20241031
  Receipt Date: 20250803
  Transmission Date: 20251021
  Serious: Yes (Other)
  Sender: ALEXION PHARMACEUTICALS
  Company Number: EU-ASTRAZENECA-202410EEA016748PL

PATIENT
  Age: 66 Year

DRUGS (1)
  1. CALQUENCE [Suspect]
     Active Substance: ACALABRUTINIB
     Indication: Chronic lymphocytic leukaemia

REACTIONS (7)
  - Hypogammaglobulinaemia [Unknown]
  - Atrial fibrillation [Not Recovered/Not Resolved]
  - Ventricular extrasystoles [Unknown]
  - Supraventricular extrasystoles [Unknown]
  - Bundle branch block right [Unknown]
  - Pyrexia [Unknown]
  - Upper respiratory tract infection [Unknown]
